FAERS Safety Report 11464512 (Version 1)
Quarter: 2015Q3

REPORT INFORMATION
  Report Type: Spontaneous
  Country: US (occurrence: US)
  Receive Date: 20150831
  Receipt Date: 20150831
  Transmission Date: 20151125
  Serious: Yes (Death)
  Sender: FDA-Public Use
  Company Number: US-ELI_LILLY_AND_COMPANY-US201106004020

PATIENT
  Age: 20 Year
  Sex: Male

DRUGS (3)
  1. HYDROCODONE [Concomitant]
     Active Substance: HYDROCODONE
     Indication: PAIN
     Dosage: UNK, UNKNOWN
  2. XANAX                                   /USA/ [Concomitant]
     Indication: ANXIETY
     Dosage: UNK, UNKNOWN
  3. CYMBALTA [Suspect]
     Active Substance: DULOXETINE HYDROCHLORIDE
     Indication: DEPRESSION
     Dosage: UNK, UNKNOWN

REACTIONS (4)
  - Feeling abnormal [Unknown]
  - Depression [Unknown]
  - Completed suicide [Fatal]
  - Drug dependence [Unknown]

NARRATIVE: CASE EVENT DATE: 20110604
